FAERS Safety Report 7272142-7 (Version None)
Quarter: 2010Q4

REPORT INFORMATION
  Report Type: 
  Country: None (occurrence: None)
  Receive Date: 20101210
  Receipt Date: 20101001
  Transmission Date: 20110411
  Serious: Yes (Hospitalization)
  Sender: FDA-Public Use
  Company Number: US-003904

PATIENT
  Sex: Female
  Weight: 236 kg

DRUGS (1)
  1. TRANEXAMIC ACID [Suspect]
     Indication: MENORRHAGIA
     Dosage: (1300 MG TID ORAL)
     Route: 048
     Dates: start: 20100921, end: 20100923

REACTIONS (1)
  - DEEP VEIN THROMBOSIS [None]
